FAERS Safety Report 8777560 (Version 2)
Quarter: 2012Q4

REPORT INFORMATION
  Report Type: 
  Country: US (occurrence: US)
  Receive Date: 20120910
  Receipt Date: 20120913
  Transmission Date: 20130627
  Serious: Yes (Other)
  Sender: FDA-Public Use
  Company Number: US-PFIZER INC-2012218608

PATIENT
  Age: 69 Year
  Sex: Male
  Weight: 88.44 kg

DRUGS (5)
  1. EFFEXOR XR [Suspect]
     Indication: DEPRESSION
     Dosage: 150 mg, daily
  2. EFFEXOR XR [Suspect]
     Indication: ANXIETY
     Dosage: 150 mg, 1x/day
     Route: 048
  3. XANAX [Concomitant]
     Indication: DEPRESSION
     Dosage: 0.25 mg, 2x/day
  4. XANAX [Concomitant]
     Indication: ANXIETY
  5. ACETYLSALICYLIC ACID [Concomitant]
     Indication: CARDIAC DISORDER
     Dosage: 81 mg, daily

REACTIONS (4)
  - Bipolar disorder [Not Recovered/Not Resolved]
  - Arthritis [Not Recovered/Not Resolved]
  - Circumstance or information capable of leading to medication error [Unknown]
  - Product quality issue [Unknown]
